FAERS Safety Report 5684011-4 (Version None)
Quarter: 2008Q1

REPORT INFORMATION
  Report Type: 
  Country: None (occurrence: None)
  Receive Date: 20080328
  Receipt Date: 20080318
  Transmission Date: 20080703
  Serious: Yes (Other)
  Sender: FDA-Public Use
  Company Number: BR-JNJFOC-20080304788

PATIENT
  Age: 56 Year
  Sex: Male
  Weight: 176 kg

DRUGS (5)
  1. ACETAMINOPHEN W/ CODEINE [Suspect]
     Indication: POLYNEUROPATHY
     Dosage: 3 TABLETS/DAY ORAL STARTED 4 MONTHS BEFORE THE REPORT
     Route: 048
  2. DAONIL [Concomitant]
     Indication: DIABETES MELLITUS
     Route: 065
  3. DIENPAX [Concomitant]
     Indication: PAIN
     Route: 048
  4. MIONEVRIX [Concomitant]
     Route: 065
  5. TEGRETOL [Concomitant]
     Route: 048

REACTIONS (5)
  - CONSTIPATION [None]
  - DECREASED IMMUNE RESPONSIVENESS [None]
  - PNEUMONIA [None]
  - PRURITUS [None]
  - SOMNOLENCE [None]
